FAERS Safety Report 6657946-3 (Version None)
Quarter: 2010Q1

REPORT INFORMATION
  Report Type: 
  Country: None (occurrence: None)
  Receive Date: 20100326
  Receipt Date: 20100319
  Transmission Date: 20100710
  Serious: Yes (Other)
  Sender: FDA-Public Use
  Company Number: 1000012620

PATIENT
  Age: 21 Year
  Sex: Female

DRUGS (1)
  1. CELEXA [Suspect]
     Indication: DEPRESSION
     Dosage: (1 IN 1 D), ORAL
     Route: 048
     Dates: end: 20100314

REACTIONS (4)
  - DIZZINESS [None]
  - FOREIGN TRAVEL [None]
  - MALARIA [None]
  - PARAESTHESIA [None]
